FAERS Safety Report 19597949 (Version 1)
Quarter: 2021Q3

REPORT INFORMATION
  Report Type: Spontaneous
  Country: US (occurrence: US)
  Receive Date: 20210722
  Receipt Date: 20210722
  Transmission Date: 20211014
  Serious: No
  Sender: FDA-Public Use
  Company Number: None

PATIENT
  Age: 62 Year
  Sex: Female
  Weight: 79 kg

DRUGS (14)
  1. ALBUTEROL. [Concomitant]
     Active Substance: ALBUTEROL
  2. GABAPENTIN 100MG [Concomitant]
     Active Substance: GABAPENTIN
  3. ATORVASTATIN 10MG [Concomitant]
     Active Substance: ATORVASTATIN
  4. POTASSIUM CHLORIDE ER 20MEQ [Concomitant]
  5. HYDROCODONE?ACETAMINOPHEN 10?325MG [Concomitant]
     Active Substance: ACETAMINOPHEN\HYDROCODONE
  6. VITAMIN C 500MG [Concomitant]
  7. FLUTICASONE 50MCG/ACT [Concomitant]
  8. VITAMIN B12 500MCG [Concomitant]
  9. OXYCODONE?ACETAMINOPHEN 5?325MG [Concomitant]
  10. OMEPRAZOLE 20MG [Concomitant]
     Active Substance: OMEPRAZOLE
  11. IBRANCE [Suspect]
     Active Substance: PALBOCICLIB
     Indication: BREAST CANCER
     Dosage: OTHER FREQUENCY:QD 21/28 DAYS;?
     Route: 048
     Dates: start: 20201027, end: 20210722
  12. CHLORTHALIDONE 25MG [Concomitant]
     Active Substance: CHLORTHALIDONE
  13. CALCIUM + D [Concomitant]
     Active Substance: CALCIUM\VITAMIN D
  14. DOCUSATE [Concomitant]
     Active Substance: DOCUSATE

REACTIONS (1)
  - Disease progression [None]

NARRATIVE: CASE EVENT DATE: 20210722
